FAERS Safety Report 4757985-3 (Version None)
Quarter: 2005Q3

REPORT INFORMATION
  Report Type: 
  Country: None (occurrence: None)
  Receive Date: 20050826
  Receipt Date: 20050202
  Transmission Date: 20060218
  Serious: Yes (Other)
  Sender: FDA-Public Use
  Company Number: CIP05000241

PATIENT
  Sex: Female

DRUGS (3)
  1. ASACOL [Suspect]
     Indication: CROHN'S DISEASE
     Dosage: 400 MG TWICE TO 4 TIMES DAILY
  2. IMIPRAMINE [Concomitant]
  3. REMICADE [Concomitant]

REACTIONS (2)
  - HEPATIC ENZYME INCREASED [None]
  - JAUNDICE [None]
